FAERS Safety Report 17302856 (Version 1)
Quarter: 2020Q1

REPORT INFORMATION
  Report Type: Spontaneous
  Country: MX (occurrence: MX)
  Receive Date: 20200122
  Receipt Date: 20200122
  Transmission Date: 20200409
  Serious: Yes (Other)
  Sender: FDA-Public Use
  Company Number: MX-TOPROL ACQUISITION LLC-2020-TOP-000040

PATIENT
  Sex: Male
  Weight: 90 kg

DRUGS (1)
  1. METOPROLOL SUCCINATE. [Suspect]
     Active Substance: METOPROLOL SUCCINATE
     Indication: HYPERTENSION
     Dosage: 95 MG, QD
     Route: 048
     Dates: start: 2016, end: 2019

REACTIONS (5)
  - Dizziness [Unknown]
  - Palpitations [Unknown]
  - Blood pressure increased [Unknown]
  - Heart rate decreased [Unknown]
  - Muscular weakness [Unknown]
